FAERS Safety Report 18038100 (Version 1)
Quarter: 2020Q3

REPORT INFORMATION
  Report Type: Spontaneous
  Country: US (occurrence: US)
  Receive Date: 20200717
  Receipt Date: 20200717
  Transmission Date: 20201103
  Serious: Yes (Hospitalization)
  Sender: FDA-Public Use
  Company Number: US-ABBVIE-20K-163-3478242-00

PATIENT
  Sex: Male
  Weight: 90.8 kg

DRUGS (2)
  1. SURVANTA [Suspect]
     Active Substance: BERACTANT
     Indication: COVID-19
     Route: 065
     Dates: start: 202006
  2. SURVANTA [Suspect]
     Active Substance: BERACTANT
     Indication: PULMONARY PAIN

REACTIONS (2)
  - Therapeutic response shortened [Unknown]
  - Pulmonary pain [Not Recovered/Not Resolved]
